FAERS Safety Report 12923324 (Version 1)
Quarter: 2016Q4

REPORT INFORMATION
  Report Type: Report from Study
  Country: None (occurrence: BR)
  Receive Date: 20161109
  Receipt Date: 20161109
  Transmission Date: 20170207
  Serious: Yes (Hospitalization, Other)
  Sender: FDA-Public Use
  Company Number: BR-ABBVIE-16K-020-1770586-00

PATIENT
  Sex: Male
  Weight: 105 kg

DRUGS (1)
  1. HUMIRA [Suspect]
     Active Substance: ADALIMUMAB
     Indication: RHEUMATOID ARTHRITIS
     Route: 058
     Dates: start: 20110101, end: 201607

REACTIONS (15)
  - Lip discolouration [Recovered/Resolved]
  - Lip discolouration [Recovered/Resolved]
  - Skin discolouration [Recovered/Resolved]
  - Cardiomegaly [Unknown]
  - Skin discolouration [Recovered/Resolved]
  - Cough [Recovered/Resolved]
  - Anal incontinence [Recovered/Resolved]
  - Cough [Recovered/Resolved]
  - Hyperhidrosis [Recovered/Resolved]
  - Cough [Recovered/Resolved]
  - Skin discolouration [Recovered/Resolved]
  - Lip discolouration [Recovered/Resolved]
  - Heart rate irregular [Unknown]
  - Hyperhidrosis [Recovered/Resolved]
  - Hyperhidrosis [Recovered/Resolved]

NARRATIVE: CASE EVENT DATE: 2016
